FAERS Safety Report 7149174-2 (Version None)
Quarter: 2010Q4

REPORT INFORMATION
  Report Type: 
  Country: None (occurrence: None)
  Receive Date: 20101126
  Receipt Date: 20101110
  Transmission Date: 20110411
  Serious: Yes (Hospitalization, Other)
  Sender: FDA-Public Use
  Company Number: 019971

PATIENT
  Sex: Female
  Weight: 91.2 kg

DRUGS (13)
  1. CIMZIA [Suspect]
     Indication: CROHN'S DISEASE
     Dosage: (400 MG 1X/4 WEEKS, LAST DOSE 20/OCT/2010 SUBCUTANEOUS)
     Route: 058
     Dates: start: 20091211
  2. PENTASA [Concomitant]
  3. PANTOPRAZOLE SODIUM [Concomitant]
  4. FAMOTIDINE [Concomitant]
  5. SIMVASTATIN [Concomitant]
  6. LANTUS [Concomitant]
  7. METFORMIN HCL [Concomitant]
  8. NEXIUM [Concomitant]
  9. GLIMEPIRIDE [Concomitant]
  10. AMBIEN [Concomitant]
  11. OXYCODONE HCL AND ACETAMINOPHEN [Concomitant]
  12. LISINOPRIL [Concomitant]
  13. TEMAZEPAM [Concomitant]

REACTIONS (16)
  - ABDOMINAL PAIN [None]
  - BACK PAIN [None]
  - CARPAL TUNNEL SYNDROME [None]
  - CHEST DISCOMFORT [None]
  - CHEST PAIN [None]
  - CONSTIPATION [None]
  - DIARRHOEA HAEMORRHAGIC [None]
  - DRUG EFFECT DELAYED [None]
  - ECHOCARDIOGRAM ABNORMAL [None]
  - HAEMORRHOIDS [None]
  - HYPOPHAGIA [None]
  - ISCHAEMIA [None]
  - RASH [None]
  - THERAPEUTIC RESPONSE DECREASED [None]
  - THROMBOPHLEBITIS SUPERFICIAL [None]
  - THROMBOSIS [None]
